FAERS Safety Report 11697967 (Version 1)
Quarter: 2015Q4

REPORT INFORMATION
  Report Type: Spontaneous
  Country: US (occurrence: US)
  Receive Date: 20151104
  Receipt Date: 20151104
  Transmission Date: 20160304
  Serious: No
  Sender: FDA-Public Use
  Company Number: US-ELI_LILLY_AND_COMPANY-US201012003949

PATIENT
  Sex: Female

DRUGS (1)
  1. FORTEO [Suspect]
     Active Substance: TERIPARATIDE
     Indication: OSTEOPOROSIS
     Dosage: 20 UG, DAILY (1/D)
     Dates: start: 20101208

REACTIONS (13)
  - Tremor [Unknown]
  - Nausea [Unknown]
  - Anxiety [Unknown]
  - Crying [Unknown]
  - Hyperhidrosis [Unknown]
  - Limb discomfort [Unknown]
  - Feeling abnormal [Unknown]
  - Abdominal discomfort [Unknown]
  - Fatigue [Unknown]
  - Pain in extremity [Unknown]
  - Malaise [Not Recovered/Not Resolved]
  - Palpitations [Unknown]
  - Insomnia [Unknown]
